FAERS Safety Report 15022251 (Version 1)
Quarter: 2018Q2

REPORT INFORMATION
  Report Type: Spontaneous
  Country: US (occurrence: US)
  Receive Date: 20180618
  Receipt Date: 20180618
  Transmission Date: 20180711
  Serious: No
  Sender: FDA-Public Use
  Company Number: US-PFIZER INC-2018243768

PATIENT
  Age: 70 Year
  Sex: Female

DRUGS (2)
  1. DILANTIN [Suspect]
     Active Substance: PHENYTOIN
     Indication: SEIZURE
     Dosage: UNK
  2. GABAPENTIN. [Suspect]
     Active Substance: GABAPENTIN
     Indication: SEIZURE
     Dosage: UNK

REACTIONS (2)
  - Drug ineffective [Unknown]
  - Drug intolerance [Unknown]
